FAERS Safety Report 17169967 (Version 1)
Quarter: 2019Q4

REPORT INFORMATION
  Report Type: Spontaneous
  Country: PL (occurrence: PL)
  Receive Date: 20191218
  Receipt Date: 20191218
  Transmission Date: 20200122
  Serious: Yes (Other)
  Sender: FDA-Public Use
  Company Number: PL-TEVA-2019-PL-1134346

PATIENT
  Age: 66 Year
  Sex: Male

DRUGS (2)
  1. OXYCODONE [Suspect]
     Active Substance: OXYCODONE
     Indication: PAIN
     Dosage: DOSES FROM 80 MG/DAILY UP TO 400 MG/DAILY
     Route: 048
  2. METHADONE [Suspect]
     Active Substance: METHADONE HYDROCHLORIDE
     Indication: PAIN
     Dosage: 24 MG/D
     Route: 048

REACTIONS (22)
  - Somnolence [Recovering/Resolving]
  - Pain [Recovering/Resolving]
  - Hyperaesthesia [Recovering/Resolving]
  - Allodynia [Recovering/Resolving]
  - Distractibility [Recovering/Resolving]
  - Decreased appetite [Recovering/Resolving]
  - Dyspnoea exertional [Recovering/Resolving]
  - Constipation [Recovering/Resolving]
  - Amnesia [Recovering/Resolving]
  - Nuchal rigidity [Recovering/Resolving]
  - Dyspnoea at rest [Recovering/Resolving]
  - Infrequent bowel movements [Recovering/Resolving]
  - Muscular weakness [Recovering/Resolving]
  - Myoclonus [Recovering/Resolving]
  - Confusional state [Recovering/Resolving]
  - Delirium [Recovering/Resolving]
  - Cachexia [Recovering/Resolving]
  - Balance disorder [Recovering/Resolving]
  - Speech disorder [Recovering/Resolving]
  - Sleep disorder [Recovering/Resolving]
  - Dyschezia [Recovering/Resolving]
  - Faeces hard [Recovering/Resolving]
